FAERS Safety Report 10707227 (Version 5)
Quarter: 2018Q4

REPORT INFORMATION
  Report Type: Report from Study
  Country: FR (occurrence: FR)
  Receive Date: 20150113
  Receipt Date: 20181001
  Transmission Date: 20190204
  Serious: Yes (Hospitalization, Other)
  Sender: FDA-Public Use
  Company Number: FR-PFIZER INC-2014354045

PATIENT
  Age: 25 Year
  Sex: Female
  Weight: 74 kg

DRUGS (8)
  1. NIVESTIM [Suspect]
     Active Substance: FILGRASTIM
     Dosage: UNK
     Dates: end: 20140904
  2. ATGAM [Suspect]
     Active Substance: EQUINE THYMOCYTE IMMUNE GLOBULIN
     Indication: BONE MARROW FAILURE
     Dosage: 40 MG/KG/DAY
     Route: 042
     Dates: start: 20140812, end: 20140815
  3. SOLU-MEDROL [Suspect]
     Active Substance: METHYLPREDNISOLONE SODIUM SUCCINATE
     Indication: BONE MARROW FAILURE
  4. SOLU-MEDROL [Suspect]
     Active Substance: METHYLPREDNISOLONE SODIUM SUCCINATE
     Indication: PREMEDICATION
     Dosage: 2 MG/KG/DAY
     Dates: start: 20140812, end: 20140815
  5. POLARAMINE [Concomitant]
     Active Substance: DEXCHLORPHENIRAMINE MALEATE
     Indication: PREMEDICATION
     Dosage: 1 VIAL
  6. CICLOSPORIN [Suspect]
     Active Substance: CYCLOSPORINE
     Indication: BONE MARROW FAILURE
     Dosage: 5 MG/KG, DAILY
     Route: 042
     Dates: start: 20140812
  7. INEXIUM [Suspect]
     Active Substance: ESOMEPRAZOLE
     Indication: ABDOMINAL PAIN UPPER
     Dosage: 40 MG, 2X/DAY
     Route: 048
     Dates: start: 201408, end: 20140825
  8. PARACETAMOL [Concomitant]
     Active Substance: ACETAMINOPHEN
     Indication: PREMEDICATION
     Dosage: 1 G, UNK

REACTIONS (15)
  - Capillary leak syndrome [Recovered/Resolved]
  - Generalised oedema [Recovered/Resolved]
  - Serum sickness [Recovered/Resolved]
  - Abdominal pain upper [Recovering/Resolving]
  - Oral fungal infection [Unknown]
  - Rash maculo-papular [Unknown]
  - Steroid diabetes [Unknown]
  - Septic shock [Recovered/Resolved]
  - Sepsis [Recovering/Resolving]
  - Pyrexia [Recovered/Resolved]
  - Stomatitis [Unknown]
  - Condition aggravated [Recovered/Resolved]
  - Pancytopenia [Not Recovered/Not Resolved]
  - Acute kidney injury [Recovered/Resolved]
  - Cardiac failure congestive [Recovered/Resolved]

NARRATIVE: CASE EVENT DATE: 201408
